FAERS Safety Report 23142354 (Version 1)
Quarter: 2023Q4

REPORT INFORMATION
  Report Type: Spontaneous
  Country: US (occurrence: US)
  Receive Date: 20231103
  Receipt Date: 20231103
  Transmission Date: 20240109
  Serious: Yes (Other)
  Sender: FDA-Public Use
  Company Number: US-HIKMA PHARMACEUTICALS USA INC.-US-H14001-23-66547

PATIENT

DRUGS (5)
  1. BETAMETHASONE [Suspect]
     Active Substance: BETAMETHASONE
     Indication: Product used for unknown indication
     Dosage: 2 LOADING DOSES
     Route: 065
  2. BETAMETHASONE DIPROPIONATE\CLOTRIMAZOLE\NEOMYCIN SULFATE [Suspect]
     Active Substance: BETAMETHASONE DIPROPIONATE\CLOTRIMAZOLE\NEOMYCIN SULFATE
     Indication: Product used for unknown indication
     Route: 065
  3. KESIMPTA [Suspect]
     Active Substance: OFATUMUMAB
     Indication: Product used for unknown indication
     Route: 065
  4. PREDNISONE [Suspect]
     Active Substance: PREDNISONE
     Indication: Product used for unknown indication
     Dosage: UNK
     Route: 065
  5. PREDNISONE [Suspect]
     Active Substance: PREDNISONE
     Dosage: UNK
     Dates: start: 20231004

REACTIONS (11)
  - Fatigue [Unknown]
  - Pain in extremity [Recovered/Resolved]
  - Musculoskeletal stiffness [Recovered/Resolved]
  - Skin swelling [Unknown]
  - Dyspnoea [Unknown]
  - Drug interaction [Unknown]
  - Asthenia [Unknown]
  - Feeling abnormal [Unknown]
  - Optic neuritis [Unknown]
  - Multiple sclerosis [Unknown]
  - Vulvovaginal pruritus [Unknown]
